FAERS Safety Report 7950322-2 (Version None)
Quarter: 2011Q4

REPORT INFORMATION
  Report Type: 
  Country: None (occurrence: None)
  Receive Date: 20111130
  Receipt Date: 20111117
  Transmission Date: 20120403
  Serious: Yes (Other)
  Sender: FDA-Public Use
  Company Number: US-ELI_LILLY_AND_COMPANY-US201111006233

PATIENT
  Sex: Female

DRUGS (2)
  1. CYMBALTA [Suspect]
     Dosage: UNK
  2. CYMBALTA [Suspect]
     Dosage: 120 MG, QD

REACTIONS (2)
  - SPINAL OSTEOARTHRITIS [None]
  - INTERVERTEBRAL DISC PROTRUSION [None]
